FAERS Safety Report 8338980-4 (Version None)
Quarter: 2012Q2

REPORT INFORMATION
  Report Type: 
  Country: None (occurrence: None)
  Receive Date: 20120507
  Receipt Date: 20120427
  Transmission Date: 20120825
  Serious: Yes (Other)
  Sender: FDA-Public Use
  Company Number: CN-BAYER-2012-017131

PATIENT
  Age: 56 Year
  Sex: Female

DRUGS (1)
  1. AVELOX [Suspect]
     Indication: GENITAL INFECTION FEMALE
     Dosage: 1 DF, ONCE
     Route: 048
     Dates: start: 20120211

REACTIONS (10)
  - EXTRASYSTOLES [None]
  - ELECTROCARDIOGRAM ST SEGMENT ABNORMAL [None]
  - MYOCARDIAL ISCHAEMIA [None]
  - HEART SOUNDS ABNORMAL [None]
  - HEADACHE [None]
  - CHEST PAIN [None]
  - ABDOMINAL PAIN UPPER [None]
  - PAIN IN EXTREMITY [None]
  - BLOOD PRESSURE DECREASED [None]
  - HEART RATE INCREASED [None]
